FAERS Safety Report 16591532 (Version 1)
Quarter: 2019Q3

REPORT INFORMATION
  Report Type: Spontaneous
  Country: CN (occurrence: CN)
  Receive Date: 20190718
  Receipt Date: 20190718
  Transmission Date: 20191004
  Serious: Yes (Other)
  Sender: FDA-Public Use
  Company Number: CN-PFIZER INC-2019301139

PATIENT
  Age: 59 Year
  Sex: Male
  Weight: 54 kg

DRUGS (2)
  1. SODIUM CHLORIDE. [Concomitant]
     Active Substance: SODIUM CHLORIDE
     Indication: VEHICLE SOLUTION USE
     Dosage: 250 ML, 1X/DAY (WITH METHYLPREDNISOLONE SODIUM SUCCINATE)
     Route: 041
     Dates: start: 20190605
  2. METHYLPREDNISOLONE SODIUM SUCCINATE. [Suspect]
     Active Substance: METHYLPREDNISOLONE SODIUM SUCCINATE
     Indication: VASCULITIS
     Dosage: 500 MG, 1X/DAY
     Route: 041
     Dates: start: 20190605, end: 20190610

REACTIONS (5)
  - Pyrexia [Recovering/Resolving]
  - Hypophagia [Recovering/Resolving]
  - Off label use [Unknown]
  - Hyponatraemia [Recovering/Resolving]
  - Product use in unapproved indication [Unknown]

NARRATIVE: CASE EVENT DATE: 20190605
